FAERS Safety Report 8353098-2 (Version None)
Quarter: 2012Q2

REPORT INFORMATION
  Report Type: 
  Country: None (occurrence: None)
  Receive Date: 20120511
  Receipt Date: 20101124
  Transmission Date: 20120825
  Serious: No
  Sender: FDA-Public Use
  Company Number: US-TEVA-2010006123

PATIENT
  Sex: Female
  Weight: 54.48 kg

DRUGS (2)
  1. PROZAC [Concomitant]
     Indication: DEPRESSION
     Dates: start: 20000101
  2. NUVIGIL [Suspect]
     Indication: FATIGUE
     Dosage: 150 MILLIGRAM;
     Route: 048
     Dates: start: 20101118

REACTIONS (1)
  - DRUG INEFFECTIVE [None]
